FAERS Safety Report 4547145-3 (Version None)
Quarter: 2005Q1

REPORT INFORMATION
  Report Type: 
  Country: None (occurrence: None)
  Receive Date: 20050105
  Receipt Date: 20041222
  Transmission Date: 20050727
  Serious: Yes (Other)
  Sender: FDA-Public Use
  Company Number: 200416246BCC

PATIENT
  Age: 61 Year
  Sex: Female
  Weight: 99.7913 kg

DRUGS (3)
  1. ALEVE [Suspect]
     Indication: PAIN MANAGEMENT
     Dosage: 220 MG, BID, ORAL
     Route: 048
     Dates: start: 20041101, end: 20041201
  2. CLONIDINE [Concomitant]
  3. ZYRTEC [Concomitant]

REACTIONS (1)
  - BLOOD PRESSURE INCREASED [None]
